FAERS Safety Report 22598753 (Version 1)
Quarter: 2023Q2

REPORT INFORMATION
  Report Type: Report from Study
  Country: US (occurrence: US)
  Receive Date: 20230614
  Receipt Date: 20230614
  Transmission Date: 20230722
  Serious: Yes (Death, Other)
  Sender: FDA-Public Use
  Company Number: None

PATIENT
  Age: 62 Year
  Sex: Female
  Weight: 58 kg

DRUGS (25)
  1. LYSODREN [Suspect]
     Active Substance: MITOTANE
     Indication: Adrenal gland cancer
     Dosage: 10 MILLIGRAM, BID
     Route: 048
  2. ETOPOSIDE [Suspect]
     Active Substance: ETOPOSIDE
     Indication: Adrenal gland cancer
     Dosage: UNK
  3. ETOPOSIDE [Suspect]
     Active Substance: ETOPOSIDE
     Indication: Adrenal gland cancer
     Dosage: 100 MILLIGRAM PER MILLILITRE, QM
  4. CISPLATIN [Suspect]
     Active Substance: CISPLATIN
     Indication: Adrenal gland cancer
     Dosage: 100 MG/100ML ONCE PER MONTH
  5. DOXORUBICIN [Suspect]
     Active Substance: DOXORUBICIN
     Indication: Adrenal gland cancer
     Dosage: UNK UNK, QM
  6. DOXORUBICIN [Suspect]
     Active Substance: DOXORUBICIN
     Indication: Adrenal gland cancer
     Dosage: 10 MILLIGRAM, UNK
  7. ISTURISA [Suspect]
     Active Substance: OSILODROSTAT PHOSPHATE
     Indication: Cushing^s syndrome
     Dosage: 1 MILLIGRAM, BID
     Dates: start: 20211111
  8. ISTURISA [Suspect]
     Active Substance: OSILODROSTAT PHOSPHATE
     Indication: Cushing^s syndrome
     Dosage: 2 MILLIGRAM, BID
  9. ISTURISA [Suspect]
     Active Substance: OSILODROSTAT PHOSPHATE
     Indication: Cushing^s syndrome
     Dosage: 3 MILLIGRAM, BID
  10. ISTURISA [Suspect]
     Active Substance: OSILODROSTAT PHOSPHATE
     Indication: Cushing^s syndrome
     Dosage: 4 MILLIGRAM, BID
  11. ISTURISA [Suspect]
     Active Substance: OSILODROSTAT PHOSPHATE
     Indication: Cushing^s syndrome
     Dosage: 1 MILLIGRAM, BID
  12. ISTURISA [Suspect]
     Active Substance: OSILODROSTAT PHOSPHATE
     Indication: Cushing^s syndrome
     Dosage: 3 MILLIGRAM AT AM AND 4 MILLIGRAM AT PM, BID
  13. AMLODIPINE [Concomitant]
     Active Substance: AMLODIPINE BESYLATE
     Indication: Hypertension
     Dosage: 10 MILLIGRAM
  14. LUTEIN-VISION [Concomitant]
     Indication: Eye disorder
     Dosage: 1 DOSAGE FORM, BID
  15. SPIRONOLACTONE [Concomitant]
     Active Substance: SPIRONOLACTONE
     Indication: Hormone suppression therapy
     Dosage: 100 MILLIGRAM
  16. LEVOTHYROXINE SODIUM [Concomitant]
     Active Substance: LEVOTHYROXINE SODIUM
     Indication: Hypothyroidism
     Dosage: 125 MICROGRAM
  17. FISH OIL [Concomitant]
     Active Substance: FISH OIL
     Indication: Eye disorder
     Dosage: 1000 MILLIGRAM, BID
  18. METFORMIN [Concomitant]
     Active Substance: METFORMIN HYDROCHLORIDE
     Indication: Blood glucose increased
     Dosage: 500 MILLIGRAM, BID
  19. POTASSIUM CHLORIDE [Concomitant]
     Active Substance: POTASSIUM CHLORIDE
     Indication: Hypokalaemia
     Dosage: 40 MILLIEQUIVALENT, TID
  20. VITAMIN B COMPLEX [Concomitant]
     Active Substance: CYANOCOBALAMIN\DEXPANTHENOL\NIACINAMIDE\PYRIDOXINE HYDROCHLORIDE\RIBOFLAVIN 5^-PHOSPHATE SODIUM\THIA
     Indication: Hypovitaminosis
     Dosage: 1000 UNITS
  21. CARVEDILOL [Concomitant]
     Active Substance: CARVEDILOL
     Indication: Hypertension
     Dosage: 25 MILLIGRAM, BID
  22. CANNABIS SATIVA SUBSP. INDICA TOP [Concomitant]
     Active Substance: CANNABIS SATIVA SUBSP. INDICA TOP
     Indication: Nausea
     Dosage: ONE EDIBLE, PRN
  23. VITAMIN C [Concomitant]
     Active Substance: ASCORBIC ACID
     Indication: Hypovitaminosis
     Dosage: 2000 MILLIGRAM
  24. GAMUNEX-C [Concomitant]
     Active Substance: HUMAN IMMUNOGLOBULIN G
     Indication: Chronic inflammatory demyelinating polyradiculoneuropathy
     Dosage: 10G/10ML EVERY FOUR WEEKS
  25. LOSARTAN POTASSIUM [Concomitant]
     Active Substance: LOSARTAN POTASSIUM
     Indication: Hypertension
     Dosage: 100 MILLIGRAM

REACTIONS (17)
  - Death [Fatal]
  - Dyspnoea [Recovering/Resolving]
  - Blood pressure decreased [Unknown]
  - Adrenal gland cancer metastatic [Unknown]
  - Metastases to lung [Unknown]
  - Cough [Unknown]
  - Insomnia [Not Recovered/Not Resolved]
  - Mucosal disorder [Not Recovered/Not Resolved]
  - Rhinorrhoea [Unknown]
  - Sneezing [Not Recovered/Not Resolved]
  - Nausea [Recovered/Resolved]
  - Decreased appetite [Recovered/Resolved]
  - Muscular weakness [Not Recovered/Not Resolved]
  - Fatigue [Recovered/Resolved]
  - Frequent bowel movements [Recovered/Resolved]
  - Dizziness [Not Recovered/Not Resolved]
  - Vomiting [Recovered/Resolved]

NARRATIVE: CASE EVENT DATE: 20211201
